FAERS Safety Report 9752973 (Version 2)
Quarter: 2013Q4

REPORT INFORMATION
  Report Type: Spontaneous
  Country: GB (occurrence: GB)
  Receive Date: 20131213
  Receipt Date: 20131213
  Transmission Date: 20140711
  Serious: Yes (Life-Threatening)
  Sender: FDA-Public Use
  Company Number: GB-GALDERMA-GB13003571

PATIENT
  Age: 45 Year
  Sex: Female

DRUGS (1)
  1. PLIAGLIS [Suspect]
     Indication: PRODUCT USED FOR UNKNOWN INDICATION
     Dosage: LIDOCAINE 7%/ TETRACAINE 7%
     Route: 061
     Dates: start: 20131016, end: 20131016

REACTIONS (4)
  - Type I hypersensitivity [Recovered/Resolved]
  - Swelling face [Recovered/Resolved]
  - Pain [Recovered/Resolved]
  - Erythema [Recovered/Resolved]
